FAERS Safety Report 7995547-5 (Version None)
Quarter: 2011Q4

REPORT INFORMATION
  Report Type: 
  Country: None (occurrence: None)
  Receive Date: 20111220
  Receipt Date: 20111215
  Transmission Date: 20120403
  Serious: Yes (Other)
  Sender: FDA-Public Use
  Company Number: US-PFIZER INC-2011305914

PATIENT
  Sex: Female
  Weight: 54.422 kg

DRUGS (2)
  1. LYRICA [Suspect]
     Indication: NEURALGIA
  2. LYRICA [Suspect]
     Indication: NERVE INJURY
     Dosage: 75 MG, DAILY
     Route: 048
     Dates: start: 20111129, end: 20111130

REACTIONS (1)
  - MANIA [None]
